FAERS Safety Report 5417144-8 (Version None)
Quarter: 2007Q4

REPORT INFORMATION
  Report Type: 
  Country: None (occurrence: None)
  Receive Date: 20070718
  Receipt Date: 20060628
  Transmission Date: 20080405
  Serious: Yes (Hospitalization)
  Sender: FDA-Public Use
  Company Number: 2006068762

PATIENT
  Age: 68 Year
  Sex: Female
  Weight: 49.8957 kg

DRUGS (1)
  1. CELEBREX [Suspect]
     Indication: ARTHRITIS
     Dosage: (200 MG)
     Dates: start: 20010305, end: 20051201

REACTIONS (2)
  - FATIGUE [None]
  - MYOCARDIAL INFARCTION [None]
